FAERS Safety Report 20892354 (Version 1)
Quarter: 2022Q2

REPORT INFORMATION
  Report Type: Spontaneous
  Country: GB (occurrence: GB)
  Receive Date: 20220530
  Receipt Date: 20220530
  Transmission Date: 20220720
  Serious: Yes (Other)
  Sender: FDA-Public Use
  Company Number: GB-MHRA-MED-202205161509092500-UHJ32

PATIENT
  Age: 76 Year
  Sex: Female

DRUGS (3)
  1. LEVOFLOXACIN [Suspect]
     Active Substance: LEVOFLOXACIN
     Indication: Biliary sepsis
     Dosage: 500 MG, BID
     Route: 065
     Dates: start: 20220509, end: 20220516
  2. METRONIDAZOLE [Suspect]
     Active Substance: METRONIDAZOLE
     Indication: Biliary sepsis
     Route: 065
     Dates: start: 20220507
  3. VANCOMYCIN [Suspect]
     Active Substance: VANCOMYCIN
     Indication: Biliary sepsis
     Route: 065
     Dates: start: 20220511

REACTIONS (2)
  - Tendonitis [Not Recovered/Not Resolved]
  - Arthralgia [Not Recovered/Not Resolved]

NARRATIVE: CASE EVENT DATE: 20220515
